FAERS Safety Report 13035581 (Version 1)
Quarter: 2016Q4

REPORT INFORMATION
  Report Type: Spontaneous
  Country: US (occurrence: US)
  Receive Date: 20161215
  Receipt Date: 20161215
  Transmission Date: 20170207
  Serious: Yes (Death)
  Sender: FDA-Public Use
  Company Number: None

PATIENT
  Age: 56 Year
  Sex: Male
  Weight: 73.93 kg

DRUGS (1)
  1. VIDAZA [Suspect]
     Active Substance: AZACITIDINE
     Indication: PROPHYLAXIS AGAINST GRAFT VERSUS HOST DISEASE
     Route: 042
     Dates: start: 20161007, end: 20161010

REACTIONS (15)
  - Febrile neutropenia [None]
  - Respiratory failure [None]
  - Haemofiltration [None]
  - Human herpesvirus 6 infection [None]
  - Fluid overload [None]
  - Viraemia [None]
  - Pleural effusion [None]
  - Seizure [None]
  - Post procedural complication [None]
  - Acute kidney injury [None]
  - Haemodynamic instability [None]
  - Limbic encephalitis [None]
  - Blood stem cell transplant failure [None]
  - Multiple organ dysfunction syndrome [None]
  - Pancytopenia [None]

NARRATIVE: CASE EVENT DATE: 20161208
